FAERS Safety Report 15369800 (Version 1)
Quarter: 2018Q3

REPORT INFORMATION
  Report Type: Report from Study
  Country: US (occurrence: US)
  Receive Date: 20180911
  Receipt Date: 20180911
  Transmission Date: 20181010
  Serious: Yes (Other)
  Sender: FDA-Public Use
  Company Number: US-ROCHE-2179376

PATIENT
  Age: 14 Year
  Sex: Male
  Weight: 55.1 kg

DRUGS (2)
  1. NUTROPIN AQ [Suspect]
     Active Substance: SOMATROPIN
     Dosage: 6 INJECTIONS/WEEK
     Route: 058
     Dates: start: 201509
  2. NUTROPIN AQ [Suspect]
     Active Substance: SOMATROPIN
     Indication: GROWTH HORMONE DEFICIENCY
     Dosage: 6 INJECTIONS/WEEK
     Route: 058
     Dates: start: 201509

REACTIONS (4)
  - Tibia fracture [Recovered/Resolved]
  - Wrist fracture [Recovered/Resolved]
  - Dry skin [Unknown]
  - Fibula fracture [Recovered/Resolved]

NARRATIVE: CASE EVENT DATE: 201602
